FAERS Safety Report 13546723 (Version 1)
Quarter: 2017Q2

REPORT INFORMATION
  Report Type: Spontaneous
  Country: US (occurrence: US)
  Receive Date: 20170515
  Receipt Date: 20170515
  Transmission Date: 20170830
  Serious: No
  Sender: FDA-Public Use
  Company Number: US-VIFOR (INTERNATIONAL) INC.-VIT-2017-02577

PATIENT
  Age: 84 Year
  Sex: Female

DRUGS (8)
  1. JANUM [Concomitant]
  2. LEVOTHYR [Concomitant]
  3. VITAMIN D3 [Concomitant]
     Active Substance: CHOLECALCIFEROL
  4. STARLIX [Concomitant]
     Active Substance: NATEGLINIDE
  5. IRBESAR [Concomitant]
  6. VELTASSA [Suspect]
     Active Substance: PATIROMER
     Indication: HYPERKALAEMIA
     Route: 048
     Dates: start: 201612
  7. TRAMAD [Concomitant]
  8. ATORVAST [Concomitant]

REACTIONS (2)
  - Bowel movement irregularity [Unknown]
  - Abdominal pain upper [Unknown]

NARRATIVE: CASE EVENT DATE: 201612
